FAERS Safety Report 9155531 (Version 5)
Quarter: 2014Q1

REPORT INFORMATION
  Report Type: Spontaneous
  Country: BR (occurrence: BR)
  Receive Date: 20130311
  Receipt Date: 20140303
  Transmission Date: 20141002
  Serious: Yes (Death, Life-Threatening, Hospitalization, Other)
  Sender: FDA-Public Use
  Company Number: PHHY2013BR022666

PATIENT
  Age: 18 Year
  Sex: Female

DRUGS (11)
  1. TEGRETOL [Suspect]
     Indication: CONVULSION
     Dosage: 10 ML, 3 TIMES PER DAY
     Route: 048
  2. TEGRETOL [Suspect]
     Dosage: UNK UKN, (GRADUAL INCREASE)
  3. FLUIMUCIL [Suspect]
     Dosage: UNK UKN, TWICE A DAY
     Route: 048
  4. PREDSIM [Suspect]
     Dosage: 5 ML, 3 TIMES PER DAY (MORNING, AFTERNOON, AND NIGHT)
  5. BAMBAIR [Suspect]
     Dosage: UNK UKN, ONCE A DAY
     Route: 048
  6. DEPAKENE [Suspect]
     Dosage: 10 ML, 3 TIMES PER DAY
  7. LAMITOR [Suspect]
     Dosage: 1 DF, 3 TIMES PER DAY
     Route: 048
  8. NEOSINE [Suspect]
     Dosage: 20 DRP, TWICE A DAY
  9. GARDENAL ^AVENTIS^ [Suspect]
     Dosage: 35 DROPS IN MORNING AND 40 DROPS AT NIGHT
  10. RIVOTRIL [Suspect]
     Dosage: 5 DROPS IN THE MORNING, 7 DROPS AT NIGHT
  11. ALVESCO [Suspect]
     Dosage: UNK UKN, TWICE A DAY

REACTIONS (34)
  - Pneumonia [Fatal]
  - Convulsion [Not Recovered/Not Resolved]
  - Gastrooesophageal reflux disease [Not Recovered/Not Resolved]
  - Respiratory arrest [Unknown]
  - Cardiac arrest [Recovered/Resolved]
  - Sepsis [Unknown]
  - Epilepsy [Not Recovered/Not Resolved]
  - Urinary tract infection [Unknown]
  - Inappropriate affect [Unknown]
  - Eye movement disorder [Unknown]
  - Asthenia [Unknown]
  - Drooling [Unknown]
  - Foaming at mouth [Not Recovered/Not Resolved]
  - Feeling abnormal [Unknown]
  - Choking [Unknown]
  - Insomnia [Unknown]
  - Cough [Unknown]
  - Moaning [Unknown]
  - Nervousness [Unknown]
  - Nasopharyngitis [Unknown]
  - Bowel movement irregularity [Not Recovered/Not Resolved]
  - Dysphagia [Unknown]
  - Oral mucosal discolouration [Unknown]
  - Hypokinesia [Unknown]
  - Nail discolouration [Unknown]
  - Oxygen consumption decreased [Unknown]
  - Influenza [Recovering/Resolving]
  - Diarrhoea [Recovered/Resolved]
  - Agitation [Not Recovered/Not Resolved]
  - Tremor [Not Recovered/Not Resolved]
  - Weight increased [Recovered/Resolved]
  - Dyspnoea [Unknown]
  - Fatigue [Unknown]
  - Weight decreased [Unknown]
